FAERS Safety Report 21965869 (Version 3)
Quarter: 2023Q2

REPORT INFORMATION
  Report Type: Report from Study
  Country: BR (occurrence: BR)
  Receive Date: 20230208
  Receipt Date: 20230623
  Transmission Date: 20230721
  Serious: No
  Sender: FDA-Public Use
  Company Number: BR-002147023-NVSC2023BR022906

PATIENT
  Age: 11 Year
  Sex: Female

DRUGS (1)
  1. OMNITROPE [Suspect]
     Active Substance: SOMATROPIN
     Indication: Product used for unknown indication
     Dosage: UNK UNK, QD (1.6 DOSE USED)
     Route: 065

REACTIONS (5)
  - Device issue [Unknown]
  - Incorrect dose administered by device [Unknown]
  - Device mechanical issue [Not Recovered/Not Resolved]
  - Device failure [Unknown]
  - Device malfunction [Not Recovered/Not Resolved]

NARRATIVE: CASE EVENT DATE: 20230123
